FAERS Safety Report 12109616 (Version 1)
Quarter: 2016Q1

REPORT INFORMATION
  Report Type: Spontaneous
  Country: US (occurrence: None)
  Receive Date: 20160222
  Receipt Date: 20160222
  Transmission Date: 20160526
  Serious: No
  Sender: FDA-Public Use
  Company Number: None

PATIENT
  Age: 49 Year
  Sex: Male

DRUGS (11)
  1. DEXAMETHASONE. [Concomitant]
     Active Substance: DEXAMETHASONE
  2. HYDROMORPHONE [Concomitant]
     Active Substance: HYDROMORPHONE
  3. SUTENT [Suspect]
     Active Substance: SUNITINIB MALATE
     Indication: NEOPLASM MALIGNANT
     Dosage: 1 CAPSULE DAILY BY MOUTH
     Route: 048
     Dates: start: 20151020, end: 20160204
  4. BISACODYL. [Concomitant]
     Active Substance: BISACODYL
  5. ONDANSETRON [Concomitant]
     Active Substance: ONDANSETRON
  6. LORAZEPAM. [Concomitant]
     Active Substance: LORAZEPAM
  7. SCOPOLAMINE TD [Concomitant]
  8. WARFARIN [Concomitant]
     Active Substance: WARFARIN
  9. METOCLOPRAMIDE. [Concomitant]
     Active Substance: METOCLOPRAMIDE
  10. PROMETHAZINE [Concomitant]
     Active Substance: PROMETHAZINE\PROMETHAZINE HYDROCHLORIDE
  11. MORPHINE [Concomitant]
     Active Substance: MORPHINE

REACTIONS (1)
  - Drug ineffective [None]

NARRATIVE: CASE EVENT DATE: 20160204
